FAERS Safety Report 19303543 (Version 1)
Quarter: 2021Q2

REPORT INFORMATION
  Report Type: Spontaneous
  Country: ES (occurrence: ES)
  Receive Date: 20210525
  Receipt Date: 20210525
  Transmission Date: 20210717
  Serious: Yes (Other)
  Sender: FDA-Public Use
  Company Number: ES-MYLANLABS-2021M1030041

PATIENT
  Sex: Female

DRUGS (24)
  1. EPREX [Concomitant]
     Active Substance: ERYTHROPOIETIN
     Dosage: 40.000/WEEKLY
  2. AMITRIPTYLINE [Concomitant]
     Active Substance: AMITRIPTYLINE
     Dosage: 1 TABLET AT DINNER
  3. FUNGAREST [Concomitant]
     Active Substance: KETOCONAZOLE
     Dosage: EVERY 12 HOURS AT AXILLA
  4. GEMCITABINE. [Suspect]
     Active Substance: GEMCITABINE
     Indication: DIFFUSE LARGE B-CELL LYMPHOMA
     Dosage: 1000 MILLIGRAM/SQ. METER (AT DAYS 1 AND 8)
     Route: 065
  5. CIPROFLOXACINE                     /00697201/ [Concomitant]
     Active Substance: CIPROFLOXACIN
     Dosage: UNK
  6. METHOTREXATE. [Concomitant]
     Active Substance: METHOTREXATE
     Dosage: 3 G DAY 1
  7. TOCILIZUMAB. [Concomitant]
     Active Substance: TOCILIZUMAB
     Indication: CYTOKINE RELEASE SYNDROME
     Dosage: UNK
     Route: 065
  8. VALTREX [Concomitant]
     Active Substance: VALACYCLOVIR HYDROCHLORIDE
     Dosage: 1.000 MG/8 HOURS
  9. BISOPROLOL [Concomitant]
     Active Substance: BISOPROLOL
     Dosage: 1 TABLET AT BREAKFAST
  10. CLEXANE [Concomitant]
     Active Substance: ENOXAPARIN SODIUM
     Dosage: 80 MILLIGRAM
  11. ESOMEPRAZOLE. [Concomitant]
     Active Substance: ESOMEPRAZOLE MAGNESIUM
     Dosage: 20 MILLIGRAM
  12. DEXAMETHASONE. [Suspect]
     Active Substance: DEXAMETHASONE
     Indication: DIFFUSE LARGE B-CELL LYMPHOMA
     Dosage: 40 MILLIGRAM, DAYS 1 AND 4
     Route: 065
  13. METHOTREXATE. [Concomitant]
     Active Substance: METHOTREXATE
     Dosage: 3 GRAM PER SQUARE METRE
     Dates: start: 20200920
  14. DIAZEPAN [Concomitant]
     Active Substance: DIAZEPAM
     Dosage: UNK/6 HOURS
  15. ACFOL [Concomitant]
     Active Substance: FOLIC ACID
     Dosage: 1 TABLET AT MEAL
  16. CARBOPLATIN. [Suspect]
     Active Substance: CARBOPLATIN
     Indication: DIFFUSE LARGE B-CELL LYMPHOMA
     Dosage: DAY 1
     Route: 065
  17. VERSATIS [Concomitant]
     Active Substance: LIDOCAINE
     Dosage: DRESSING: 1 APPLICATION EVERY 12 HOURS.
  18. NIVOLUMAB [Concomitant]
     Active Substance: NIVOLUMAB
     Dosage: 3RD DOSE OF NIVOLUMAB
     Dates: start: 20201013
  19. RITUXIMAB. [Suspect]
     Active Substance: RITUXIMAB
     Indication: DIFFUSE LARGE B-CELL LYMPHOMA
     Dosage: 375 UNK
     Route: 065
  20. ALMAX FORTE [Concomitant]
     Dosage: 1.5 GRAM
  21. SEPTRIN [Concomitant]
     Active Substance: SULFAMETHOXAZOLE\TRIMETHOPRIM
     Dosage: 1 TABLET DAILY
  22. ZALDIAR [Concomitant]
     Active Substance: ACETAMINOPHEN\TRAMADOL HYDROCHLORIDE
     Dosage: 8 HOURS, 37,5/325 MG
  23. FLUCONAZOLE. [Concomitant]
     Active Substance: FLUCONAZOLE
     Dosage: 1 CAPSULE AT BREAKFAST AND DINNER
  24. NIVOLUMAB [Concomitant]
     Active Substance: NIVOLUMAB
     Dosage: 5TH THERAPY LINE FIRST PART OF THE 1ST NIVOLUMAB AS BRIDGING THERAPY TO CAR?T.
     Dates: start: 20200916

REACTIONS (3)
  - Intentional product use issue [Unknown]
  - Off label use [Unknown]
  - Pancytopenia [Unknown]
